FAERS Safety Report 12524831 (Version 2)
Quarter: 2016Q3

REPORT INFORMATION
  Report Type: Report from Study
  Country: US (occurrence: US)
  Receive Date: 20160704
  Receipt Date: 20160804
  Transmission Date: 20161109
  Serious: Yes (Other)
  Sender: FDA-Public Use
  Company Number: US-JNJFOC-20160605942

PATIENT
  Age: 85 Year
  Sex: Male

DRUGS (13)
  1. IMBRUVICA [Suspect]
     Active Substance: IBRUTINIB
     Indication: CHRONIC LYMPHOCYTIC LEUKAEMIA
     Route: 048
     Dates: start: 20160524
  2. ZINE [Concomitant]
  3. LASIX [Concomitant]
     Active Substance: FUROSEMIDE
  4. NORVASC [Concomitant]
     Active Substance: AMLODIPINE BESYLATE
  5. ACETAMINOPHEN W/HYDROCODONE BITARTRATE [Concomitant]
     Active Substance: ACETAMINOPHEN\HYDROCODONE BITARTRATE
  6. FLUCONAZOLE. [Concomitant]
     Active Substance: FLUCONAZOLE
  7. ALDACTONE [Concomitant]
     Active Substance: SPIRONOLACTONE
  8. LUTEIN [Concomitant]
     Active Substance: LUTEIN
  9. METOPROLOL. [Concomitant]
     Active Substance: METOPROLOL
  10. MAGNESIUM OXIDE. [Concomitant]
     Active Substance: MAGNESIUM OXIDE
  11. OMEPRAZOLE. [Concomitant]
     Active Substance: OMEPRAZOLE
  12. MAGNESIUM [Concomitant]
     Active Substance: MAGNESIUM
  13. ZINC [Concomitant]
     Active Substance: ZINC\ZINC CHLORIDE

REACTIONS (10)
  - Diarrhoea [Not Recovered/Not Resolved]
  - Tumour excision [Unknown]
  - Malaise [Unknown]
  - Nervousness [Recovered/Resolved]
  - Abdominal discomfort [Not Recovered/Not Resolved]
  - Off label use [Unknown]
  - Incision site infection [Unknown]
  - Tremor [Recovered/Resolved]
  - Staphylococcal infection [Unknown]
  - Incorrect dose administered [Unknown]

NARRATIVE: CASE EVENT DATE: 2016
